FAERS Safety Report 8481130-4 (Version None)
Quarter: 2012Q3

REPORT INFORMATION
  Report Type: 
  Country: None (occurrence: None)
  Receive Date: 20120702
  Receipt Date: 20120627
  Transmission Date: 20120928
  Serious: Yes (Hospitalization, Disabling, Other)
  Sender: FDA-Public Use
  Company Number: PHHY2012CA037452

PATIENT
  Sex: Female

DRUGS (1)
  1. ZOLEDRONOC ACID [Suspect]
     Indication: OSTEOPOROSIS
     Dosage: UNK
     Route: 042
     Dates: start: 20110516

REACTIONS (4)
  - BRONCHITIS [None]
  - ASTHENIA [None]
  - BRONCHOPNEUMONIA [None]
  - CLOSTRIDIUM DIFFICILE COLITIS [None]
